FAERS Safety Report 4644631-2 (Version None)
Quarter: 2005Q2

REPORT INFORMATION
  Report Type: 
  Country: None (occurrence: None)
  Receive Date: 20050426
  Receipt Date: 20050210
  Transmission Date: 20051028
  Serious: Yes (Hospitalization, Other)
  Sender: FDA-Public Use
  Company Number: PHEH2005US01869

PATIENT
  Age: 84 Year
  Sex: Female

DRUGS (8)
  1. ZELNORM [Suspect]
     Indication: CONSTIPATION
     Dosage: 6 MG, BID
     Route: 048
     Dates: start: 20040501, end: 20050130
  2. HYZAAR [Concomitant]
     Indication: HYPERTENSION
     Dosage: UNK, UNK
     Dates: start: 20011101
  3. FOSAMAX ONCE WEEKLY [Concomitant]
     Indication: OSTEOPOROSIS
     Dosage: 70 MG, QW
  4. PROTONIX [Concomitant]
     Indication: GASTROOESOPHAGEAL REFLUX DISEASE
     Dosage: 40 MG, QD
     Dates: start: 20011101
  5. ASPIRIN [Concomitant]
     Indication: PROPHYLAXIS
     Dosage: 81 MG, QD
     Dates: start: 20011101
  6. MULTIVITAMIN [Concomitant]
     Indication: VITAMIN SUPPLEMENTATION
     Dosage: UNK, QD
  7. ZINC [Concomitant]
     Indication: VITAMIN SUPPLEMENTATION
     Dosage: 60 MG, QD
  8. OSCAL 500-D [Concomitant]
     Indication: OSTEOPOROSIS
     Dosage: UNK, TID

REACTIONS (22)
  - ABDOMINAL DISTENSION [None]
  - ABDOMINAL PAIN [None]
  - ABDOMINAL RIGIDITY [None]
  - ABDOMINAL TENDERNESS [None]
  - ABSCESS INTESTINAL [None]
  - BILE DUCT OBSTRUCTION [None]
  - BILIARY DILATATION [None]
  - COLECTOMY [None]
  - COLOSTOMY [None]
  - CONSTIPATION [None]
  - DECREASED APPETITE [None]
  - DEEP VEIN THROMBOSIS [None]
  - DIVERTICULITIS [None]
  - FLATULENCE [None]
  - INTESTINAL DILATATION [None]
  - LARGE INTESTINE PERFORATION [None]
  - NAUSEA [None]
  - PERITONITIS [None]
  - PURULENT DISCHARGE [None]
  - PYREXIA [None]
  - RENAL CYST [None]
  - VOMITING [None]
